FAERS Safety Report 16841556 (Version 1)
Quarter: 2019Q3

REPORT INFORMATION
  Report Type: Spontaneous
  Country: US (occurrence: US)
  Receive Date: 20190923
  Receipt Date: 20190923
  Transmission Date: 20191005
  Serious: Yes (Death, Hospitalization)
  Sender: FDA-Public Use
  Company Number: US-ASTRAZENECA-2019SF33980

PATIENT
  Sex: Female

DRUGS (1)
  1. TAGRISSO [Suspect]
     Active Substance: OSIMERTINIB
     Indication: NON-SMALL CELL LUNG CANCER STAGE IV
     Route: 048
     Dates: start: 2019, end: 2019

REACTIONS (5)
  - Hepatitis [Fatal]
  - Pneumonitis [Fatal]
  - Diarrhoea [Fatal]
  - Stevens-Johnson syndrome [Fatal]
  - Nephritis [Fatal]

NARRATIVE: CASE EVENT DATE: 2019
